FAERS Safety Report 4597850-8 (Version None)
Quarter: 2005Q1

REPORT INFORMATION
  Report Type: 
  Country: None (occurrence: None)
  Receive Date: 20050125
  Receipt Date: 20040910
  Transmission Date: 20050727
  Serious: No
  Sender: FDA-Public Use
  Company Number: USA030330782

PATIENT
  Age: 72 Year
  Sex: Female

DRUGS (5)
  1. FORTEO [Suspect]
     Indication: OSTEOPOROSIS
     Dates: start: 20030501
  2. EVISTA [Suspect]
     Indication: OSTEOPOROSIS
     Dosage: 60 MG OTHER
     Route: 050
     Dates: start: 20030501
  3. RELIZON (CHLORMEZANONE) [Concomitant]
  4. VITAMIN CAP [Concomitant]
  5. CALCIUM GLUCONATE [Concomitant]

REACTIONS (8)
  - CHEST DISCOMFORT [None]
  - DYSPNOEA [None]
  - FEELING ABNORMAL [None]
  - HEADACHE [None]
  - HYPERHIDROSIS [None]
  - MUSCLE SPASMS [None]
  - NAUSEA [None]
  - PARAESTHESIA [None]
